FAERS Safety Report 17231559 (Version 2)
Quarter: 2020Q3

REPORT INFORMATION
  Report Type: Report from Study
  Country: US (occurrence: US)
  Receive Date: 20200103
  Receipt Date: 20200103
  Transmission Date: 20201105
  Serious: Yes (Hospitalization)
  Sender: FDA-Public Use
  Company Number: NVSC2019US083126

PATIENT
  Age: 97 Year
  Sex: Male
  Weight: 76 kg

DRUGS (3)
  1. TRAVATAN Z [Suspect]
     Active Substance: TRAVOPROST
     Indication: PRODUCT USED FOR UNKNOWN INDICATION
     Route: 065
  2. ENTRESTO [Suspect]
     Active Substance: SACUBITRIL\VALSARTAN
     Dosage: UNK, BID
     Route: 048
  3. ENTRESTO [Suspect]
     Active Substance: SACUBITRIL\VALSARTAN
     Indication: CARDIAC FAILURE CHRONIC
     Dosage: UNK, BID
     Route: 048

REACTIONS (4)
  - Acute kidney injury [Recovered/Resolved]
  - Sepsis [Recovered/Resolved]
  - Urinary tract infection [Recovered/Resolved]
  - Asthenia [Recovered/Resolved]

NARRATIVE: CASE EVENT DATE: 20190819
